FAERS Safety Report 20309087 (Version 1)
Quarter: 2022Q1

REPORT INFORMATION
  Report Type: Spontaneous
  Country: US (occurrence: None)
  Receive Date: 20220107
  Receipt Date: 20220107
  Transmission Date: 20220423
  Serious: Yes (Hospitalization)
  Sender: FDA-Public Use
  Company Number: US-ROCHE-2984665

PATIENT
  Sex: Female

DRUGS (2)
  1. CAPECITABINE [Suspect]
     Active Substance: CAPECITABINE
     Indication: Product used for unknown indication
     Dosage: 1000 MG TWICE DAILY FOR 14 DAYS
     Route: 048
  2. TUKYSA [Suspect]
     Active Substance: TUCATINIB
     Indication: Breast cancer female
     Route: 065

REACTIONS (7)
  - Malaise [Unknown]
  - Somnolence [Unknown]
  - Headache [Unknown]
  - Decreased appetite [Unknown]
  - Confusional state [Unknown]
  - Aphasia [Unknown]
  - Metastases to central nervous system [Unknown]
